FAERS Safety Report 4341120-X (Version None)
Quarter: 2004Q2

REPORT INFORMATION
  Report Type: 
  Country: None (occurrence: None)
  Receive Date: 20040419
  Receipt Date: 20030327
  Transmission Date: 20050107
  Serious: Yes (Hospitalization)
  Sender: FDA-Public Use
  Company Number: PHHO2003US04225

PATIENT
  Age: 58 Year
  Sex: Female
  Weight: 74 kg

DRUGS (2)
  1. TEGASEROD VS PLACEBO [Suspect]
     Indication: IRRITABLE BOWEL SYNDROME
     Dosage: SCREENING
  2. PROTONIX [Concomitant]

REACTIONS (9)
  - ARTERIAL RESTENOSIS [None]
  - CHEST PAIN [None]
  - CORONARY ANGIOPLASTY [None]
  - CORONARY ARTERIAL STENT INSERTION [None]
  - ERUCTATION [None]
  - FLATULENCE [None]
  - MYOCARDIAL INFARCTION [None]
  - STENT OCCLUSION [None]
  - VENTRICULAR HYPOKINESIA [None]
